FAERS Safety Report 5772196-0 (Version None)
Quarter: 2008Q2

REPORT INFORMATION
  Report Type: 
  Country: None (occurrence: None)
  Receive Date: 20080613
  Receipt Date: 20080603
  Transmission Date: 20081010
  Serious: Yes (Hospitalization)
  Sender: FDA-Public Use
  Company Number: FR-JNJFOC-20080600762

PATIENT
  Age: 68 Year
  Sex: Male

DRUGS (8)
  1. TAVANIC [Suspect]
     Indication: DRUG USE FOR UNKNOWN INDICATION
     Route: 048
  2. PREVISCAN [Suspect]
     Indication: DRUG USE FOR UNKNOWN INDICATION
     Route: 048
  3. NEXIUM [Suspect]
     Indication: DRUG USE FOR UNKNOWN INDICATION
     Route: 048
  4. ALLOPURINOL [Concomitant]
  5. TAHOR [Concomitant]
  6. CORVASAL [Concomitant]
  7. PERINDOPRIL ERBUMINE [Concomitant]
  8. LASILIX [Concomitant]

REACTIONS (6)
  - GENITAL INFECTION FUNGAL [None]
  - HEPATOMEGALY [None]
  - ORAL FUNGAL INFECTION [None]
  - PYREXIA [None]
  - SPLENOMEGALY [None]
  - VASCULAR PURPURA [None]
